FAERS Safety Report 9705783 (Version 1)
Quarter: 2013Q4

REPORT INFORMATION
  Report Type: Spontaneous
  Country: US (occurrence: US)
  Receive Date: 20131122
  Receipt Date: 20131122
  Transmission Date: 20140711
  Serious: No
  Sender: FDA-Public Use
  Company Number: US-GILEAD-2008-0018090

PATIENT
  Age: 81 Year
  Sex: Female
  Weight: 44.45 kg

DRUGS (8)
  1. LETAIRIS [Suspect]
     Indication: PULMONARY ARTERIAL HYPERTENSION
     Route: 048
     Dates: start: 20070929
  2. LETAIRIS [Suspect]
     Route: 048
  3. NEXIUM [Concomitant]
     Route: 048
  4. K-DUR [Concomitant]
     Route: 048
  5. FUROSEMIDE [Concomitant]
     Route: 048
  6. TYLENOL ARTHRITIS [Concomitant]
     Route: 048
  7. MULTIVITAMIN [Concomitant]
  8. REVATIO [Concomitant]
     Route: 048

REACTIONS (2)
  - Herpes zoster [Not Recovered/Not Resolved]
  - Dermatitis infected [Not Recovered/Not Resolved]
